FAERS Safety Report 8483200-3 (Version None)
Quarter: 2012Q3

REPORT INFORMATION
  Report Type: 
  Country: None (occurrence: None)
  Receive Date: 20120702
  Receipt Date: 20120625
  Transmission Date: 20120928
  Serious: Yes (Other)
  Sender: FDA-Public Use
  Company Number: JP-ROCHE-1057027

PATIENT
  Sex: Female
  Weight: 69 kg

DRUGS (21)
  1. SYMBICORT [Concomitant]
  2. SINGULAIR [Concomitant]
  3. PROCATEROL HCL [Concomitant]
  4. HIRUDOID [Concomitant]
  5. IPD [Concomitant]
  6. CLOSTRIDIUM BUTYRICUM [Concomitant]
  7. EPINASTINE HYDROCHLORIDE [Concomitant]
  8. OMALIZUMAB [Suspect]
     Route: 058
     Dates: start: 20120209
  9. OMALIZUMAB [Suspect]
     Route: 058
     Dates: start: 20120223
  10. OMALIZUMAB [Suspect]
     Route: 058
     Dates: start: 20120308, end: 20120308
  11. PULMICORT [Concomitant]
  12. RIZABEN [Concomitant]
  13. PREDNISOLONE SODIUM SUCCINATE INJ [Concomitant]
  14. TRICHLORMETHIAZIDE [Concomitant]
  15. OMALIZUMAB [Suspect]
     Indication: ASTHMA
     Route: 058
     Dates: start: 20120127
  16. TRIMETHOPRIM-SULFAMETHOXAZOLE [Concomitant]
  17. CYCLOSPORINE [Suspect]
     Indication: ASTHMA
     Route: 048
  18. HOKUNALIN [Concomitant]
  19. RABEPRAZOLE SODIUM [Concomitant]
  20. ZOLPIDEM [Concomitant]
  21. DEPAS [Concomitant]

REACTIONS (3)
  - FEELING ABNORMAL [None]
  - LARYNGEAL OEDEMA [None]
  - ANAPHYLACTIC REACTION [None]
